FAERS Safety Report 5072894-0 (Version None)
Quarter: 2006Q3

REPORT INFORMATION
  Report Type: 
  Country: None (occurrence: None)
  Receive Date: 20060807
  Receipt Date: 20060725
  Transmission Date: 20061208
  Serious: Yes (Hospitalization)
  Sender: FDA-Public Use
  Company Number: FR-BOEHRINGER INGELHEIM PHARMACEUTICALS, INC.-2006-FF-00653FF

PATIENT
  Age: 92 Year
  Sex: Male
  Weight: 70 kg

DRUGS (4)
  1. ASASANTINE LP [Suspect]
     Route: 048
  2. CORDARONE [Concomitant]
     Indication: ARRHYTHMIA
     Route: 048
     Dates: end: 20060429
  3. AMLODIPINE BESYLATE [Concomitant]
     Indication: ESSENTIAL HYPERTENSION
     Route: 048
  4. ARICEPT [Concomitant]
     Indication: DEMENTIA ALZHEIMER'S TYPE
     Route: 048
     Dates: end: 20060429

REACTIONS (2)
  - ATRIOVENTRICULAR BLOCK THIRD DEGREE [None]
  - BRADYCARDIA [None]
